FAERS Safety Report 23487244 (Version 1)
Quarter: 2024Q1

REPORT INFORMATION
  Report Type: Report from Study
  Country: KR (occurrence: KR)
  Receive Date: 20240206
  Receipt Date: 20240206
  Transmission Date: 20240410
  Serious: Yes (Hospitalization, Other)
  Sender: FDA-Public Use
  Company Number: KR-002147023-NVSC2024KR015773

PATIENT
  Age: 48 Year
  Sex: Male
  Weight: 60.3 kg

DRUGS (23)
  1. ARCAPTA NEOHALER [Suspect]
     Active Substance: INDACATEROL MALEATE
     Indication: Asthma
     Dosage: 150/50/160 ?G, QD
     Dates: start: 20230613
  2. DOXOFYLLINE [Concomitant]
     Active Substance: DOXOFYLLINE
     Indication: Asthma
     Dosage: 800 MG
     Route: 065
     Dates: start: 20230803
  3. DOXOFYLLINE [Concomitant]
     Active Substance: DOXOFYLLINE
     Dosage: 1 DOSAGE FORM, BID
     Route: 048
     Dates: start: 20230803
  4. ACETYLCYSTEINE [Concomitant]
     Active Substance: ACETYLCYSTEINE
     Indication: Asthma
     Dosage: 400 MG
     Route: 065
     Dates: start: 20230803
  5. ACETYLCYSTEINE [Concomitant]
     Active Substance: ACETYLCYSTEINE
     Dosage: 200 MG, BID
     Route: 065
     Dates: start: 20230803
  6. RIFAMPIN [Concomitant]
     Active Substance: RIFAMPIN
     Indication: Tuberculosis
     Dosage: 600 MG
     Route: 065
     Dates: start: 20230710, end: 20230926
  7. MYAMBUTOL [Concomitant]
     Active Substance: ETHAMBUTOL HYDROCHLORIDE
     Indication: Tuberculosis
     Dosage: 400 MG
     Route: 065
     Dates: start: 20221027
  8. XYZAL [Concomitant]
     Active Substance: LEVOCETIRIZINE DIHYDROCHLORIDE
     Indication: Dermatitis contact
     Dosage: 5 MG, BID
     Route: 048
     Dates: start: 20211101
  9. XYZAL [Concomitant]
     Active Substance: LEVOCETIRIZINE DIHYDROCHLORIDE
     Indication: Dermatitis atopic
     Dosage: 10 MG
     Route: 065
     Dates: start: 20221101
  10. LAFUTIDINE [Concomitant]
     Active Substance: LAFUTIDINE
     Indication: Gastrooesophageal reflux disease
     Dosage: 10 MG, QD
     Route: 048
     Dates: start: 20221010, end: 20230927
  11. LAFUTIDINE [Concomitant]
     Active Substance: LAFUTIDINE
     Indication: Dermatitis atopic
  12. NEXIUM [Concomitant]
     Active Substance: ESOMEPRAZOLE MAGNESIUM
     Indication: Gastrooesophageal reflux disease
     Dosage: 20 MG, BID
     Route: 048
     Dates: start: 20221020
  13. NEXIUM [Concomitant]
     Active Substance: ESOMEPRAZOLE MAGNESIUM
     Indication: Dermatitis atopic
  14. ALLEGRA [Concomitant]
     Active Substance: FEXOFENADINE HYDROCHLORIDE
     Indication: Dermatitis contact
     Dosage: 180 MG, QD
     Route: 048
     Dates: start: 20220423
  15. ALLEGRA [Concomitant]
     Active Substance: FEXOFENADINE HYDROCHLORIDE
     Indication: Asthma
  16. DESOWEN [Concomitant]
     Active Substance: DESONIDE
     Indication: Dermatitis atopic
     Dosage: UNK, BID (1 RUB)
     Route: 061
     Dates: start: 20221027
  17. DESOWEN [Concomitant]
     Active Substance: DESONIDE
     Dosage: UNK, QD (1 RUB)
     Route: 061
     Dates: start: 20221027
  18. ELIDEL [Concomitant]
     Active Substance: PIMECROLIMUS
     Indication: Dermatitis atopic
     Dosage: 30 G, QD (1 RUB)
     Route: 065
     Dates: start: 20221002
  19. ELIDEL [Concomitant]
     Active Substance: PIMECROLIMUS
     Dosage: UNK UNK, BID (1 RUB)
     Route: 061
     Dates: start: 20221202
  20. ALITOC [Concomitant]
     Indication: Dermatitis exfoliative
     Dosage: 10 MG, QD
     Route: 048
     Dates: start: 20221002
  21. ALITOC [Concomitant]
     Dosage: 10 MG, QD
     Route: 048
     Dates: start: 20221202
  22. FEROBA-YOU [Concomitant]
     Indication: Cutaneous T-cell lymphoma
     Dosage: 256 MG, BID
     Route: 048
     Dates: start: 20221011
  23. FEROBA-YOU [Concomitant]
     Dosage: 1 DOSAGE FORM, BID
     Route: 048
     Dates: start: 20221011

REACTIONS (2)
  - Azotaemia [Recovered/Resolved]
  - Cerebral infarction [Recovering/Resolving]

NARRATIVE: CASE EVENT DATE: 20230911
